FAERS Safety Report 24972286 (Version 1)
Quarter: 2025Q1

REPORT INFORMATION
  Report Type: Spontaneous
  Country: GB (occurrence: GB)
  Receive Date: 20250214
  Receipt Date: 20250214
  Transmission Date: 20250409
  Serious: Yes (Hospitalization, Other)
  Sender: JAZZ
  Company Number: GB-JAZZ PHARMACEUTICALS-2024-GB-020385

PATIENT
  Sex: Male
  Weight: 31 kg

DRUGS (4)
  1. CANNABIDIOL [Suspect]
     Active Substance: CANNABIDIOL
     Indication: Severe myoclonic epilepsy of infancy
     Dosage: 190 MILLIGRAM, BID
     Dates: start: 20210420, end: 20240306
  2. CANNABIDIOL [Suspect]
     Active Substance: CANNABIDIOL
     Dosage: 250 MILLIGRAM, BID/ (15 MG/KG/DAY)
     Route: 048
     Dates: start: 202202
  3. CANNABIDIOL [Suspect]
     Active Substance: CANNABIDIOL
     Dates: start: 202003
  4. VALPROATE SODIUM [Suspect]
     Active Substance: VALPROATE SODIUM
     Indication: Product used for unknown indication

REACTIONS (4)
  - Cholestasis [Unknown]
  - Jaundice [Unknown]
  - Lethargy [Unknown]
  - Fatigue [Unknown]
